FAERS Safety Report 12795186 (Version 1)
Quarter: 2016Q3

REPORT INFORMATION
  Report Type: Spontaneous
  Country: US (occurrence: US)
  Receive Date: 20160929
  Receipt Date: 20160929
  Transmission Date: 20161109
  Serious: Yes (Other)
  Sender: FDA-Public Use
  Company Number: US-GE HEALTHCARE MEDICAL DIAGNOSTICS-2915056-2016-00014

PATIENT
  Age: 57 Year
  Sex: Male

DRUGS (2)
  1. IODINE (I-125) SEEDS [Suspect]
     Active Substance: IODINE I-125
     Indication: PROSTATE CANCER
     Dosage: DOSE NOT REPORTED
     Route: 050
  2. IODINE (I-125) SEEDS [Suspect]
     Active Substance: IODINE I-125
     Indication: THERAPEUTIC PROCEDURE

REACTIONS (2)
  - Urinary incontinence [Not Recovered/Not Resolved]
  - Anal fistula [Not Recovered/Not Resolved]
